APPROVED DRUG PRODUCT: LEVORPHANOL TARTRATE
Active Ingredient: LEVORPHANOL TARTRATE
Strength: 3MG
Dosage Form/Route: TABLET;ORAL
Application: A213906 | Product #002
Applicant: SUN PHARMACEUTICAL INDUSTRIES INC
Approved: Apr 25, 2023 | RLD: No | RS: Yes | Type: RX